FAERS Safety Report 8991775 (Version 3)
Quarter: 2013Q1

REPORT INFORMATION
  Report Type: Report from Study
  Country: AU (occurrence: AU)
  Receive Date: 20121231
  Receipt Date: 20130325
  Transmission Date: 20140127
  Serious: Yes (Other)
  Sender: FDA-Public Use
  Company Number: AU-JNJFOC-20121210627

PATIENT
  Sex: Female

DRUGS (8)
  1. SIMPONI [Suspect]
     Indication: RHEUMATOID ARTHRITIS
     Route: 058
     Dates: start: 20110324, end: 20121124
  2. ASTRIX [Concomitant]
  3. FOLIC ACID [Concomitant]
  4. LOSEC [Concomitant]
  5. METHOTREXATE [Concomitant]
  6. MICARDIS [Concomitant]
  7. OROXINE [Concomitant]
  8. PLENDIL [Concomitant]

REACTIONS (1)
  - Lung neoplasm malignant [Unknown]
